FAERS Safety Report 21536256 (Version 1)
Quarter: 2022Q4

REPORT INFORMATION
  Report Type: Spontaneous
  Country: US (occurrence: US)
  Receive Date: 20221101
  Receipt Date: 20221101
  Transmission Date: 20230113
  Serious: Yes (Hospitalization, Other)
  Sender: FDA-Public Use
  Company Number: US-PROCTER+GAMBLE-PH22010835

PATIENT
  Age: 7 Year
  Sex: Male

DRUGS (2)
  1. DEXTROMETHORPHAN [Suspect]
     Active Substance: DEXTROMETHORPHAN
     Indication: Oropharyngeal pain
     Dosage: UNK
  2. DOXYLAMINE SUCCINATE [Suspect]
     Active Substance: DOXYLAMINE SUCCINATE
     Indication: Oropharyngeal pain
     Dosage: UNK

REACTIONS (7)
  - Delirium [Recovering/Resolving]
  - Generalised tonic-clonic seizure [Unknown]
  - Food allergy [Unknown]
  - Agitation [Unknown]
  - Tachycardia [Unknown]
  - Incoherent [Unknown]
  - Hallucination [Unknown]
